FAERS Safety Report 8109366 (Version 3)
Quarter: 2013Q4

REPORT INFORMATION
  Report Type: Spontaneous
  Country: US (occurrence: US)
  Receive Date: 20110826
  Receipt Date: 20131202
  Transmission Date: 20140711
  Serious: Yes (Hospitalization, Other)
  Sender: FDA-Public Use
  Company Number: US-BAYER-2011-075150

PATIENT
  Age: 28 Year
  Sex: Female

DRUGS (5)
  1. YASMIN [Suspect]
     Dosage: UNK
     Dates: start: 2003, end: 2010
  2. OCELLA [Suspect]
     Dosage: UNK
     Dates: start: 2003, end: 2010
  3. ATENOLOL [Concomitant]
     Dosage: UNK
     Dates: start: 2003, end: 2008
  4. NASONEX [Concomitant]
     Dosage: UNK
     Dates: start: 2004
  5. ZYRTEC [Concomitant]
     Dosage: UNK
     Dates: start: 2004

REACTIONS (4)
  - Gallbladder injury [None]
  - Arrhythmia [None]
  - Cholecystitis [None]
  - Palpitations [None]
